FAERS Safety Report 15504455 (Version 1)
Quarter: 2018Q4

REPORT INFORMATION
  Report Type: Spontaneous
  Country: NL (occurrence: NL)
  Receive Date: 20181016
  Receipt Date: 20181016
  Transmission Date: 20190205
  Serious: Yes (Life-Threatening)
  Sender: FDA-Public Use
  Company Number: NL-ACCORD-073341

PATIENT
  Age: 74 Year
  Sex: Male
  Weight: 65 kg

DRUGS (8)
  1. OXALIPLATIN. [Suspect]
     Active Substance: OXALIPLATIN
     Indication: COLON CANCER
     Dosage: STRENGTH: 5 MG/ML
     Dates: start: 20171123
  2. ADALAT [Concomitant]
     Active Substance: NIFEDIPINE
     Dosage: STRENGTH: 30 MG
  3. CROMOGLICATE LISETIL/CROMOGLICATE SODIUM/CROMOGLICIC ACID [Concomitant]
     Dosage: STRENGTH: 20MG/ML
  4. SILDENAFIL. [Concomitant]
     Active Substance: SILDENAFIL
     Dosage: STRENGTH: 25MG
  5. BEVACIZUMAB. [Concomitant]
     Active Substance: BEVACIZUMAB
     Dosage: 7,5 MG/M2
  6. LEVOCETIRIZINE/LEVOCETIRIZINE DIHYDROCHLORIDE [Concomitant]
     Dosage: STRENGTH: 5 MG TABLET
  7. FLUTICASONE. [Concomitant]
     Active Substance: FLUTICASONE
     Dosage: STRENGTH:50UG / DO
  8. XELODA [Concomitant]
     Active Substance: CAPECITABINE
     Dosage: STRENGTH: 500MG

REACTIONS (4)
  - Defaecation urgency [Recovered/Resolved]
  - Anaphylactic reaction [Recovered/Resolved]
  - Bradycardia [Recovered/Resolved]
  - Hypotension [Recovered/Resolved]

NARRATIVE: CASE EVENT DATE: 20171123
